FAERS Safety Report 17286335 (Version 3)
Quarter: 2020Q1

REPORT INFORMATION
  Report Type: Spontaneous
  Country: CR (occurrence: CR)
  Receive Date: 20200118
  Receipt Date: 20200213
  Transmission Date: 20200409
  Serious: Yes (Other)
  Sender: FDA-Public Use
  Company Number: NVSC2020CR008896

PATIENT
  Age: 3 Year
  Sex: Female
  Weight: 15.6 kg

DRUGS (4)
  1. DICLORAN [Concomitant]
     Active Substance: DICLOFENAC SODIUM
     Indication: PHARYNGOTONSILLITIS
     Dosage: UNK
     Route: 065
     Dates: start: 20191224
  2. PANADOL [Concomitant]
     Active Substance: ACETAMINOPHEN
     Indication: PHARYNGOTONSILLITIS
     Dosage: UNK
     Route: 065
     Dates: start: 20191224
  3. CURAM [Suspect]
     Active Substance: AMOXICILLIN\CLAVULANATE POTASSIUM
     Indication: PHARYNGITIS
     Dosage: 3.5 ML, Q12H
     Route: 048
     Dates: start: 20191224
  4. CURAM [Suspect]
     Active Substance: AMOXICILLIN\CLAVULANATE POTASSIUM
     Indication: PHARYNGOTONSILLITIS
     Dosage: 1 DF
     Route: 065
     Dates: start: 20191224

REACTIONS (7)
  - Hypersensitivity [Not Recovered/Not Resolved]
  - Skin discolouration [Unknown]
  - Immune system disorder [Recovering/Resolving]
  - Rash [Recovering/Resolving]
  - Body temperature [Recovering/Resolving]
  - Cyanosis [Unknown]
  - Thermal burn [Recovering/Resolving]

NARRATIVE: CASE EVENT DATE: 20191224
